FAERS Safety Report 11051597 (Version 1)
Quarter: 2015Q2

REPORT INFORMATION
  Report Type: Spontaneous
  Country: US (occurrence: None)
  Receive Date: 20150420
  Receipt Date: 20150420
  Transmission Date: 20150821
  Serious: Yes (Life-Threatening, Disabling, Other)
  Sender: FDA-Public Use
  Company Number: None

PATIENT
  Age: 55 Year
  Sex: Female
  Weight: 99.79 kg

DRUGS (12)
  1. ATENOLOL. [Concomitant]
     Active Substance: ATENOLOL
  2. METFORMIN [Concomitant]
     Active Substance: METFORMIN HYDROCHLORIDE
  3. ALEVE [Concomitant]
     Active Substance: NAPROXEN SODIUM
  4. BENADRYL/MUCINEX [Concomitant]
  5. ALPRAZOLAM. [Concomitant]
     Active Substance: ALPRAZOLAM
  6. BUPROPION [Concomitant]
     Active Substance: BUPROPION
  7. VIT. D [Concomitant]
  8. LEXAPRO [Suspect]
     Active Substance: ESCITALOPRAM OXALATE
     Route: 048
  9. LEXAPRO [Concomitant]
     Active Substance: ESCITALOPRAM OXALATE
  10. LISINOPRIL. [Concomitant]
     Active Substance: LISINOPRIL
  11. TEMAZEPAM. [Concomitant]
     Active Substance: TEMAZEPAM
  12. TYLENOL [Concomitant]
     Active Substance: ACETAMINOPHEN

REACTIONS (5)
  - Nausea [None]
  - Constipation [None]
  - Drug ineffective [None]
  - Hyperhidrosis [None]
  - Product substitution issue [None]

NARRATIVE: CASE EVENT DATE: 20120710
